FAERS Safety Report 12523775 (Version 1)
Quarter: 2016Q3

REPORT INFORMATION
  Report Type: Spontaneous
  Country: FR (occurrence: FR)
  Receive Date: 20160704
  Receipt Date: 20160704
  Transmission Date: 20161109
  Serious: Yes (Other)
  Sender: FDA-Public Use
  Company Number: FR-CIPLA LTD.-2016FR07919

PATIENT

DRUGS (3)
  1. DONEPEZIL. [Suspect]
     Active Substance: DONEPEZIL
     Indication: DEMENTIA ALZHEIMER^S TYPE
     Dosage: UNK
     Route: 065
  2. GALANTAMINE. [Suspect]
     Active Substance: GALANTAMINE
     Indication: DEMENTIA ALZHEIMER^S TYPE
     Dosage: UNK
     Route: 065
  3. RIVASTIGMINE. [Suspect]
     Active Substance: RIVASTIGMINE
     Indication: DEMENTIA ALZHEIMER^S TYPE
     Dosage: UNK
     Route: 065

REACTIONS (1)
  - Hyperthermia [Unknown]
